FAERS Safety Report 7890607-1 (Version None)
Quarter: 2011Q4

REPORT INFORMATION
  Report Type: 
  Country: None (occurrence: None)
  Receive Date: 20111103
  Receipt Date: 20110721
  Transmission Date: 20120403
  Serious: No
  Sender: FDA-Public Use
  Company Number: US-AMGEN-USASP2011037209

PATIENT
  Sex: Female

DRUGS (7)
  1. MULTIVITAMIN                       /00097801/ [Concomitant]
  2. ENBREL [Suspect]
     Indication: PRODUCT USED FOR UNKNOWN INDICATION
     Dosage: 50 MG, QWK
  3. PLAQUENIL [Concomitant]
     Dosage: 250 MG, UNK
  4. METHOTREXATE [Concomitant]
     Dosage: 25 MG, UNK
  5. CALCIUM [Concomitant]
     Dosage: 500 MG, UNK
  6. VITAMIN D [Concomitant]
     Dosage: 2000 MG, UNK
  7. FOLIC ACID [Concomitant]
     Dosage: 1 MG, UNK

REACTIONS (2)
  - DRY MOUTH [None]
  - FATIGUE [None]
